FAERS Safety Report 7587020-3 (Version None)
Quarter: 2011Q3

REPORT INFORMATION
  Report Type: 
  Country: None (occurrence: None)
  Receive Date: 20110701
  Receipt Date: 20110617
  Transmission Date: 20111222
  Serious: Yes (Hospitalization)
  Sender: FDA-Public Use
  Company Number: PHHY2011DE54833

PATIENT
  Age: 49 Year
  Sex: Male
  Weight: 132 kg

DRUGS (2)
  1. IMATINIB MESYLATE [Suspect]
     Indication: CHRONIC MYELOID LEUKAEMIA
     Dosage: 400 MG, DAY
     Route: 048
     Dates: start: 20090331, end: 20090427
  2. INSULIN [Concomitant]
     Indication: DIABETES MELLITUS

REACTIONS (2)
  - DIABETES MELLITUS [None]
  - IIIRD NERVE PARALYSIS [None]
